FAERS Safety Report 23105080 (Version 1)
Quarter: 2023Q4

REPORT INFORMATION
  Report Type: Spontaneous
  Country: CA (occurrence: CA)
  Receive Date: 20231025
  Receipt Date: 20231025
  Transmission Date: 20240110
  Serious: Yes (Other)
  Sender: FDA-Public Use
  Company Number: CA-JNJFOC-20231042594

PATIENT
  Age: 36 Year
  Sex: Female

DRUGS (1)
  1. DIMETHICONE\LOPERAMIDE [Suspect]
     Active Substance: DIMETHICONE\LOPERAMIDE
     Indication: Abdominal pain upper
     Dosage: 2 TABLET ONCE
     Route: 048
     Dates: start: 20231001

REACTIONS (3)
  - Foreign body in throat [Unknown]
  - Choking sensation [Unknown]
  - Product size issue [Unknown]

NARRATIVE: CASE EVENT DATE: 20231001
